FAERS Safety Report 5906881-4 (Version None)
Quarter: 2008Q4

REPORT INFORMATION
  Report Type: 
  Country: None (occurrence: None)
  Receive Date: 20081003
  Receipt Date: 20080923
  Transmission Date: 20090506
  Serious: Yes (Other)
  Sender: FDA-Public Use
  Company Number: GB-RANBAXY-2008RR-18260

PATIENT
  Age: 16 Year
  Sex: Male

DRUGS (7)
  1. FLUOXETINE [Suspect]
     Indication: OBSESSIVE-COMPULSIVE DISORDER
     Dosage: 40 MG, UNK
     Route: 048
     Dates: start: 19980101
  2. FLUOXETINE [Suspect]
     Indication: TOURETTE'S DISORDER
     Dosage: 40 MG, UNK
     Route: 048
     Dates: start: 19980101
  3. PROVIGIL [Suspect]
     Indication: NARCOLEPSY
     Dosage: 200 MG, UNK
     Route: 048
     Dates: start: 20080501
  4. PROVIGIL [Suspect]
     Dosage: 400 MG, UNK
     Route: 048
  5. RISPERIDONE [Concomitant]
     Indication: OBSESSIVE-COMPULSIVE DISORDER
     Dosage: UNK
     Dates: start: 20000101
  6. RISPERIDONE [Concomitant]
     Indication: TIC
  7. RISPERIDONE [Concomitant]
     Indication: TOURETTE'S DISORDER

REACTIONS (5)
  - CONDITION AGGRAVATED [None]
  - DRUG INTERACTION [None]
  - OBSESSIVE-COMPULSIVE DISORDER [None]
  - TIC [None]
  - TOURETTE'S DISORDER [None]
